FAERS Safety Report 10287739 (Version 4)
Quarter: 2014Q4

REPORT INFORMATION
  Report Type: Spontaneous
  Country: JP (occurrence: None)
  Receive Date: 20140707
  Receipt Date: 20141126
  Transmission Date: 20150528
  Serious: Yes (Other)
  Sender: FDA-Public Use
  Company Number: AE-SPE-2014-021

PATIENT
  Age: 3 Year
  Sex: Female

DRUGS (11)
  1. B-GALACTOSIDASE (ASPERGILLUS) [Concomitant]
  2. ANTIBIOTIC-RESISTANT LACTIC ACID BACTERIA [Concomitant]
  3. AMBROXOL HYDROCHLORIDE [Concomitant]
     Active Substance: AMBROXOL HYDROCHLORIDE
  4. ORAPENEM [Suspect]
     Active Substance: TEBIPENEM PIVOXIL
     Route: 048
     Dates: start: 20140611, end: 20140617
  5. AMBROXOL HYDROCHLORIDE [Concomitant]
     Active Substance: AMBROXOL HYDROCHLORIDE
  6. MEIACT MS FINE GRANULES (CEFDITOREN PIVOXIL) [Suspect]
     Active Substance: CEFDITOREN PIVOXIL
     Indication: OTITIS MEDIA
     Route: 048
     Dates: start: 20140524, end: 20140601
  7. BETAMETHASONE/D-CHLOREPHENIRAMINE [Concomitant]
  8. EPINASTINE HYDROCHLORIDE. [Concomitant]
     Active Substance: EPINASTINE HYDROCHLORIDE
  9. TIPEPIDINE HIBENZATE [Concomitant]
     Active Substance: TIPEPIDINE HIBENZATE
  10. CLAVAMOX [Suspect]
     Active Substance: AMOXICILLIN\CLAVULANATE POTASSIUM
     Route: 048
     Dates: start: 20140602, end: 20140610
  11. TULOBUTEROL HYDROCHLORIDE [Concomitant]
     Active Substance: TULOBUTEROL HYDROCHLORIDE

REACTIONS (5)
  - White blood cell count increased [None]
  - Viral infection [None]
  - Rash generalised [None]
  - Erythema [None]
  - Drug reaction with eosinophilia and systemic symptoms [None]

NARRATIVE: CASE EVENT DATE: 20140611
